FAERS Safety Report 19934979 (Version 4)
Quarter: 2021Q4

REPORT INFORMATION
  Report Type: Report from Study
  Country: US (occurrence: US)
  Receive Date: 20211008
  Receipt Date: 20211217
  Transmission Date: 20220303
  Serious: Yes (Hospitalization, Other)
  Sender: FDA-Public Use
  Company Number: US-BRISTOL-MYERS SQUIBB COMPANY-BMS-2021-094460

PATIENT
  Age: 78 Year
  Sex: Female

DRUGS (7)
  1. NIVOLUMAB [Suspect]
     Active Substance: NIVOLUMAB
     Indication: Malignant melanoma
     Dosage: UNK UNK, Q3WK
     Route: 042
     Dates: start: 20210813
  2. NIVOLUMAB [Suspect]
     Active Substance: NIVOLUMAB
     Dosage: UNK UNK, Q3WK
     Route: 042
     Dates: start: 20210908
  3. IPILIMUMAB [Suspect]
     Active Substance: IPILIMUMAB
     Indication: Malignant melanoma
     Dosage: UNK UNK, Q3WK
     Route: 042
     Dates: start: 20210813
  4. IPILIMUMAB [Suspect]
     Active Substance: IPILIMUMAB
     Dosage: UNK UNK, Q3WK
     Route: 042
     Dates: start: 20210908
  5. KEYTRUDA [Suspect]
     Active Substance: PEMBROLIZUMAB
     Indication: Malignant melanoma
     Dosage: UNK
     Route: 065
  6. LEVOTHYROXINE [Concomitant]
     Active Substance: LEVOTHYROXINE
     Indication: Product used for unknown indication
     Dosage: 88 MICROGRAM, QD
     Route: 065
  7. CLONAZEPAM [Concomitant]
     Active Substance: CLONAZEPAM
     Indication: Product used for unknown indication
     Dosage: 0.25 MG AS NEEDED
     Route: 065
     Dates: start: 2004

REACTIONS (23)
  - Malignant neoplasm progression [Unknown]
  - Stress [Unknown]
  - Cerebral haemorrhage [Unknown]
  - Thrombosis [Not Recovered/Not Resolved]
  - Head discomfort [Unknown]
  - Dry skin [Unknown]
  - Insomnia [Unknown]
  - Night blindness [Unknown]
  - Rash [Unknown]
  - Abdominal distension [Unknown]
  - Pruritus [Recovering/Resolving]
  - Headache [Recovered/Resolved]
  - Dysphonia [Unknown]
  - Rash macular [Unknown]
  - Nervousness [Unknown]
  - Pain [Unknown]
  - Temperature intolerance [Unknown]
  - Visual impairment [Unknown]
  - Central nervous system lesion [Unknown]
  - Skin depigmentation [Unknown]
  - Asthenia [Recovering/Resolving]
  - Constipation [Recovered/Resolved]
  - Immune system disorder [Unknown]

NARRATIVE: CASE EVENT DATE: 20211025
